FAERS Safety Report 6104663-4 (Version None)
Quarter: 2009Q1

REPORT INFORMATION
  Report Type: 
  Country: None (occurrence: None)
  Receive Date: 20090304
  Receipt Date: 20090218
  Transmission Date: 20090719
  Serious: Yes (Other)
  Sender: FDA-Public Use
  Company Number: CHPA2009US05418

PATIENT
  Age: 54 Year
  Sex: Male

DRUGS (4)
  1. MAALOX [Suspect]
     Dosage: PRN ORAL
     Route: 048
  2. MYLANTA /AUS/(ALUMINIUM HYDROXIDE GEL, DRIED, MAGNESIUM HYDROXIDE, SIM [Suspect]
  3. ASCORBIC ACID [Concomitant]
  4. LEXAPRO [Concomitant]

REACTIONS (2)
  - ANXIETY [None]
  - DEPRESSION [None]
